FAERS Safety Report 17657954 (Version 1)
Quarter: 2020Q2

REPORT INFORMATION
  Report Type: Spontaneous
  Country: ZA (occurrence: ZA)
  Receive Date: 20200411
  Receipt Date: 20200411
  Transmission Date: 20200713
  Serious: Yes (Other)
  Sender: FDA-Public Use
  Company Number: ZA-AMGEN-ZAFSP2020059142

PATIENT
  Age: 63 Year
  Sex: Female

DRUGS (1)
  1. ENBREL [Suspect]
     Active Substance: ETANERCEPT
     Indication: PRODUCT USED FOR UNKNOWN INDICATION
     Dosage: 50 MILLIGRAM
     Route: 058
     Dates: start: 20190206

REACTIONS (2)
  - Lower respiratory tract infection [Not Recovered/Not Resolved]
  - Asthma [Not Recovered/Not Resolved]
